FAERS Safety Report 14214320 (Version 3)
Quarter: 2020Q3

REPORT INFORMATION
  Report Type: Spontaneous
  Country: JP (occurrence: JP)
  Receive Date: 20171122
  Receipt Date: 20200702
  Transmission Date: 20201102
  Serious: Yes (Other)
  Sender: FDA-Public Use
  Company Number: JP-NOVOPROD-573904

PATIENT
  Age: 75 Year
  Sex: Female

DRUGS (1)
  1. GLUCAGON G NOVO [Suspect]
     Active Substance: GLUCAGON
     Indication: ENDOSCOPY UPPER GASTROINTESTINAL TRACT
     Dosage: 1 MG
     Route: 030
     Dates: start: 201611

REACTIONS (1)
  - Cardiac arrest [Recovered/Resolved]

NARRATIVE: CASE EVENT DATE: 201611
